FAERS Safety Report 8042605-5 (Version None)
Quarter: 2012Q1

REPORT INFORMATION
  Report Type: 
  Country: None (occurrence: None)
  Receive Date: 20120112
  Receipt Date: 20120102
  Transmission Date: 20120608
  Serious: Yes (Other)
  Sender: FDA-Public Use
  Company Number: CO-AMGEN-COLSP2012000832

PATIENT
  Age: 69 Year
  Sex: Female

DRUGS (5)
  1. OMEPRAZOLE [Concomitant]
     Dosage: UNK
  2. HYOSCINE [Concomitant]
     Dosage: UNK
  3. ENBREL [Suspect]
     Indication: PSORIASIS
     Dosage: 50 MG, WEEKLY
     Route: 058
     Dates: start: 20090101
  4. RANITIDINE [Concomitant]
     Dosage: UNK
  5. AMITRIPTYLINE HCL [Concomitant]
     Dosage: UNK UNK, UNK

REACTIONS (5)
  - BRONCHITIS [None]
  - HELICOBACTER GASTRITIS [None]
  - FIBROMYALGIA [None]
  - SUBCUTANEOUS ABSCESS [None]
  - CHROMATURIA [None]
